FAERS Safety Report 5627166-X (Version None)
Quarter: 2008Q1

REPORT INFORMATION
  Report Type: 
  Country: None (occurrence: None)
  Receive Date: 20080213
  Receipt Date: 20080213
  Transmission Date: 20080703
  Serious: Yes (Other)
  Sender: FDA-Public Use
  Company Number: None

PATIENT
  Age: 46 Year
  Sex: Male
  Weight: 104.3273 kg

DRUGS (1)
  1. VYTORIN [Suspect]
     Indication: BLOOD CHOLESTEROL INCREASED
     Dosage: 20MG 1 A DAY PO
     Route: 048
     Dates: start: 20070401, end: 20070601

REACTIONS (2)
  - CHEST DISCOMFORT [None]
  - MUSCLE SPASMS [None]
